FAERS Safety Report 6248817-5 (Version None)
Quarter: 2009Q2

REPORT INFORMATION
  Report Type: 
  Country: None (occurrence: None)
  Receive Date: 20090624
  Receipt Date: 20090609
  Transmission Date: 20091009
  Serious: Yes (Death)
  Sender: FDA-Public Use
  Company Number: AE 2009-074

PATIENT
  Age: 38 Year
  Sex: Male

DRUGS (1)
  1. FAZACLO ODT [Suspect]
     Dosage: 375 MG DAILY PO
     Route: 048
     Dates: start: 20050103, end: 20090502

REACTIONS (1)
  - RESPIRATORY ARREST [None]
